FAERS Safety Report 19289015 (Version 1)
Quarter: 2021Q2

REPORT INFORMATION
  Report Type: Spontaneous
  Country: DE (occurrence: DE)
  Receive Date: 20210521
  Receipt Date: 20210521
  Transmission Date: 20210717
  Serious: Yes (Other)
  Sender: FDA-Public Use
  Company Number: DE-BAUSCH-BL-2021-016911

PATIENT
  Age: 61 Year
  Sex: Female

DRUGS (10)
  1. IPILIMUMAB [Concomitant]
     Active Substance: IPILIMUMAB
     Dosage: RESTARTED
  2. NIVOLUMAB [Concomitant]
     Active Substance: NIVOLUMAB
  3. IPILIMUMAB [Concomitant]
     Active Substance: IPILIMUMAB
     Dosage: CYCLE 2
  4. IPILIMUMAB [Concomitant]
     Active Substance: IPILIMUMAB
     Indication: METASTATIC MALIGNANT MELANOMA
  5. DEXAMETHASONE. [Suspect]
     Active Substance: DEXAMETHASONE
     Indication: MORPHOEA
     Route: 042
  6. CLOBETASOL PROPIONATE. [Suspect]
     Active Substance: CLOBETASOL PROPIONATE
     Indication: MORPHOEA
     Route: 061
  7. IPILIMUMAB [Concomitant]
     Active Substance: IPILIMUMAB
  8. NIVOLUMAB [Concomitant]
     Active Substance: NIVOLUMAB
     Indication: METASTATIC MALIGNANT MELANOMA
  9. NIVOLUMAB [Concomitant]
     Active Substance: NIVOLUMAB
     Dosage: CYCLE 2
  10. FOTEMUSTINE [Concomitant]
     Active Substance: FOTEMUSTINE
     Indication: METASTATIC MALIGNANT MELANOMA
     Dosage: 1.5 CYCLE

REACTIONS (3)
  - Metastases to central nervous system [Unknown]
  - Therapy partial responder [Unknown]
  - Malignant neoplasm progression [Unknown]
